FAERS Safety Report 21240212 (Version 1)
Quarter: 2022Q3

REPORT INFORMATION
  Report Type: Spontaneous
  Country: US (occurrence: None)
  Receive Date: 20220819
  Receipt Date: 20220819
  Transmission Date: 20221026
  Serious: Yes (Hospitalization)
  Sender: FDA-Public Use
  Company Number: None

PATIENT
  Sex: Female

DRUGS (2)
  1. TOBRAMYCIN [Suspect]
     Active Substance: TOBRAMYCIN
     Indication: Asthma
     Dosage: 300 MG/4ML?INHALE 4 ML (300 MG) VIA NEBULIZER TWO TIMES DAILY.? ?
     Route: 055
  2. CLARITIN-D [Concomitant]

REACTIONS (1)
  - Intensive care [None]
